FAERS Safety Report 19620788 (Version 1)
Quarter: 2021Q3

REPORT INFORMATION
  Report Type: Spontaneous
  Country: US (occurrence: US)
  Receive Date: 20210728
  Receipt Date: 20210728
  Transmission Date: 20211014
  Serious: Yes (Death, Other)
  Sender: FDA-Public Use
  Company Number: US-ALKEM LABORATORIES LIMITED-US-ALKEM-2020-04081

PATIENT
  Age: 67 Year
  Sex: Female

DRUGS (1)
  1. FINGOLIMOD. [Suspect]
     Active Substance: FINGOLIMOD
     Indication: RELAPSING-REMITTING MULTIPLE SCLEROSIS
     Dosage: UNK
     Route: 065
     Dates: start: 201111

REACTIONS (17)
  - Pleocytosis [Unknown]
  - Vomiting [Unknown]
  - Secondary progressive multiple sclerosis [Unknown]
  - Pyrexia [Unknown]
  - Diplopia [Unknown]
  - Protein total increased [Unknown]
  - Infarction [Unknown]
  - Angiopathy [Unknown]
  - Immune reconstitution inflammatory syndrome [Fatal]
  - Lymphopenia [Unknown]
  - Muscular weakness [Unknown]
  - Ophthalmoplegia [Unknown]
  - Dysarthria [Unknown]
  - Blood glucose decreased [Unknown]
  - Confusional state [Unknown]
  - Meningitis cryptococcal [Unknown]
  - Encephalopathy [Unknown]
